FAERS Safety Report 5793463-0 (Version None)
Quarter: 2008Q2

REPORT INFORMATION
  Report Type: 
  Country: None (occurrence: None)
  Receive Date: 20080627
  Receipt Date: 20080616
  Transmission Date: 20081010
  Serious: Yes (Hospitalization)
  Sender: FDA-Public Use
  Company Number: US-MERCK-0806USA07601

PATIENT
  Sex: Female

DRUGS (2)
  1. MEVACOR [Suspect]
     Indication: BLOOD CHOLESTEROL INCREASED
     Route: 048
     Dates: end: 20070101
  2. PRAVACHOL [Suspect]
     Route: 065
     Dates: start: 20020101, end: 20080101

REACTIONS (3)
  - FALL [None]
  - MUSCULAR WEAKNESS [None]
  - MYOPATHY [None]
